FAERS Safety Report 9204121 (Version 1)
Quarter: 2013Q1

REPORT INFORMATION
  Report Type: Spontaneous
  Country: US (occurrence: None)
  Receive Date: 20130329
  Receipt Date: 20130329
  Transmission Date: 20140127
  Serious: Yes (Other)
  Sender: FDA-Public Use
  Company Number: None

PATIENT
  Age: 48 Year
  Sex: Female
  Weight: 74.84 kg

DRUGS (2)
  1. LEVOTHYROXIN [Suspect]
     Indication: HYPOTHYROIDISM
     Dosage: 1 TABLET
     Route: 048
     Dates: start: 20130224, end: 20130317
  2. FLOVENT [Concomitant]

REACTIONS (7)
  - Anxiety [None]
  - Weight decreased [None]
  - Heart rate increased [None]
  - Insomnia [None]
  - Irritability [None]
  - Product substitution issue [None]
  - Laboratory test abnormal [None]
